FAERS Safety Report 8901591 (Version 1)
Quarter: 2012Q4

REPORT INFORMATION
  Report Type: Spontaneous
  Country: US (occurrence: None)
  Receive Date: 20121108
  Receipt Date: 20121108
  Transmission Date: 20130627
  Serious: Yes (Other)
  Sender: FDA-Public Use
  Company Number: None

PATIENT
  Age: 63 Year
  Sex: Female
  Weight: 99.79 kg

DRUGS (1)
  1. OMEPRAZOLE [Suspect]
     Indication: GERD
     Route: 048
     Dates: start: 19900101, end: 20121107

REACTIONS (4)
  - Wrist fracture [None]
  - Upper limb fracture [None]
  - Lower limb fracture [None]
  - Fall [None]
